FAERS Safety Report 9150103 (Version 2)
Quarter: 2013Q2

REPORT INFORMATION
  Report Type: Report from Study
  Country: DE (occurrence: DE)
  Receive Date: 20130308
  Receipt Date: 20130523
  Transmission Date: 20140414
  Serious: Yes (Death, Life-Threatening, Hospitalization, Disabling, Other)
  Sender: FDA-Public Use
  Company Number: DE-PFIZER INC-2013077698

PATIENT
  Age: 71 Year
  Sex: Female

DRUGS (22)
  1. IRINOTECAN HCL [Suspect]
     Indication: BRAIN NEOPLASM MALIGNANT
     Dosage: 144 MG, CYCLIC, EVERY 2 WEEKS
     Route: 042
     Dates: start: 20120125
  2. IRINOTECAN HCL [Suspect]
     Dosage: 144 MG, CYCLIC, EVERY 2 WEEKS
     Route: 042
     Dates: start: 20120203, end: 20120828
  3. BEVACIZUMAB [Suspect]
     Indication: BRAIN NEOPLASM MALIGNANT
     Dosage: 570 MG, CYCLIC, EVERY 2 WEEKS
     Route: 042
     Dates: start: 20111214, end: 20120828
  4. DEXAMETHASONE [Concomitant]
     Dosage: 8/MG
     Dates: start: 20111118
  5. DEXAMETHASONE [Concomitant]
     Dosage: 4/MG
     Dates: start: 20111115, end: 20111118
  6. DEXAMETHASONE [Concomitant]
     Dosage: 1/MG
     Dates: start: 20111119, end: 20111120
  7. PANTOZOL [Concomitant]
     Dosage: 40/MG
     Dates: start: 20111117, end: 20111216
  8. L-THYROXIN [Concomitant]
     Dosage: 0.1/MG
     Dates: start: 20111117
  9. L-THYROXIN [Concomitant]
     Dosage: 0.125/MG
     Dates: start: 20111117
  10. FRAXIPARIN [Concomitant]
     Dosage: 0.3/ML
     Dates: start: 20111117, end: 20111216
  11. TRIAMCINOLONE [Concomitant]
     Dosage: UNKNOWN/0.1%
     Dates: start: 20120216, end: 20120217
  12. KEPPRA [Concomitant]
     Dosage: 250 (2-0-2)/MG
     Dates: start: 20120426
  13. KEPPRA [Concomitant]
     Dosage: 2/MG
     Dates: start: 20111115
  14. ARNICA MONTANA [Concomitant]
     Dosage: UNK
     Dates: start: 20120209, end: 20120216
  15. NEBIVOLOL [Concomitant]
     Dosage: 1 MG, UNK
     Dates: start: 20111115
  16. RAMILICH [Concomitant]
     Dosage: 2 MG, UNK
     Dates: start: 20111115
  17. AMLODIPINE [Concomitant]
     Dosage: 1-0-1/MG
     Dates: start: 201201
  18. BAYOTENSIN [Concomitant]
     Dosage: AS NEEDED (ON DEMAND/TUBE)
     Dates: start: 20111110
  19. MOXONIDINE [Concomitant]
     Dosage: 0.2/MG
     Dates: start: 20120313, end: 20120313
  20. HYLO-COMOD [Concomitant]
     Dosage: DROPS/ML
     Dates: start: 2009
  21. COTRIM FORTE [Concomitant]
     Dosage: 960 1-0-1/MG
     Dates: start: 20120203, end: 20120209
  22. COTRIM FORTE [Concomitant]
     Dosage: 960/MG
     Dates: start: 20120527, end: 20120531

REACTIONS (3)
  - Intraventricular haemorrhage [Fatal]
  - Cerebral disorder [Fatal]
  - Cardiac tamponade [Fatal]
